FAERS Safety Report 20473207 (Version 14)
Quarter: 2024Q2

REPORT INFORMATION
  Report Type: Report from Study
  Country: US (occurrence: US)
  Receive Date: 20220215
  Receipt Date: 20240617
  Transmission Date: 20240716
  Serious: Yes (Life-Threatening, Hospitalization, Other)
  Sender: FDA-Public Use
  Company Number: US-NOVARTISPH-NVSC2022US031692

PATIENT
  Age: 1 Year
  Sex: Male
  Weight: 11.2 kg

DRUGS (1)
  1. ZOLGENSMA [Suspect]
     Active Substance: ONASEMNOGENE ABEPARVOVEC-XIOI
     Indication: Spinal muscular atrophy
     Dosage: 35.8 ML, ONCE/SINGLE (AT DAY 57 OF LIFE)
     Route: 042
     Dates: start: 20201119

REACTIONS (16)
  - Bone neoplasm [Not Recovered/Not Resolved]
  - Eating disorder [Not Recovered/Not Resolved]
  - Opisthotonus [Not Recovered/Not Resolved]
  - Back pain [Recovered/Resolved]
  - Neck pain [Recovered/Resolved]
  - Incision site swelling [Recovered/Resolved]
  - Neoplasm recurrence [Recovering/Resolving]
  - Urinary retention [Unknown]
  - Neoplasm [Unknown]
  - Post procedural persistent drain fluid [Unknown]
  - Hypokinesia [Unknown]
  - Dysstasia [Unknown]
  - Muscular weakness [Recovered/Resolved]
  - Irritability [Unknown]
  - Alanine aminotransferase increased [Unknown]
  - Aspartate aminotransferase increased [Unknown]

NARRATIVE: CASE EVENT DATE: 20220210
